FAERS Safety Report 10073943 (Version 2)
Quarter: 2014Q2

REPORT INFORMATION
  Report Type: Spontaneous
  Country: US (occurrence: US)
  Receive Date: 20140411
  Receipt Date: 20140514
  Transmission Date: 20141212
  Serious: No
  Sender: FDA-Public Use
  Company Number: US-009507513-1404USA001718

PATIENT
  Age: 54 Year
  Sex: Male
  Weight: 80.27 kg

DRUGS (1)
  1. DULERA [Suspect]
     Indication: ASTHMA
     Dosage: 100/5 DOSES, 2 INHALATIONS TWICE DAILY
     Route: 055
     Dates: start: 20131230, end: 20140122

REACTIONS (4)
  - Fungal infection [Recovered/Resolved]
  - Swelling face [Recovered/Resolved]
  - Rash [Recovered/Resolved]
  - Urticaria [Recovered/Resolved]
